FAERS Safety Report 7972048-1 (Version None)
Quarter: 2011Q4

REPORT INFORMATION
  Report Type: 
  Country: None (occurrence: None)
  Receive Date: 20111212
  Receipt Date: 20111130
  Transmission Date: 20120403
  Serious: Yes (Hospitalization, Other)
  Sender: FDA-Public Use
  Company Number: US-ELI_LILLY_AND_COMPANY-US201012001633

PATIENT
  Sex: Female
  Weight: 52.154 kg

DRUGS (37)
  1. REMICADE [Concomitant]
     Indication: CROHN'S DISEASE
  2. ASACOL [Concomitant]
     Dosage: 800 MG, TID
  3. NAPROXEN (ALEVE) [Concomitant]
     Indication: PAIN
     Dosage: 220 MG, BID
  4. FISH OIL [Concomitant]
  5. FORTEO [Suspect]
     Indication: OSTEOPOROSIS
     Dosage: 20 UG, DAILY (1/D)
     Dates: start: 20100916
  6. ULTRAM [Concomitant]
     Dosage: UNK, PRN
  7. STRESSTABS WITH ZINC [Concomitant]
  8. METAMUCIL-2 [Concomitant]
     Dosage: 1 DF, QD
  9. POTASSIUM CHLORIDE [Concomitant]
     Dosage: 10 MEQ, QD
  10. ADVAIR DISKUS 100/50 [Concomitant]
     Dosage: 2 DF, UNK
  11. FORTEO [Suspect]
     Dosage: 20 UG, DAILY (1/D)
     Dates: end: 20110625
  12. SPIRIVA [Concomitant]
     Dosage: 2 DF, QD
  13. FEOSOL [Concomitant]
     Indication: ANAEMIA
     Dosage: 1 DF, BID
  14. FORTEO [Suspect]
     Dosage: 20 UG, QD
  15. COREG [Concomitant]
     Dosage: 1.562 MG, UNK
  16. COREG [Concomitant]
     Dosage: 3.5 MG, QD
  17. ARICEPT [Concomitant]
     Dosage: 10 MG, UNK
  18. ADVAIR DISKUS 100/50 [Concomitant]
     Dosage: 1 DF, BID
  19. COMPAZINE [Concomitant]
     Dosage: UNK, PRN
  20. PROTONIX [Concomitant]
     Dosage: UNK, BID
  21. FORTEO [Suspect]
     Dosage: 20 UG, QD
  22. SPIRIVA [Concomitant]
     Dosage: 1 DF, QD
  23. ALTRAMET [Concomitant]
  24. TYLENOL                                 /SCH/ [Concomitant]
     Indication: PAIN
     Dosage: 500 MG, PRN
  25. EFFEXOR [Concomitant]
     Dosage: UNK
  26. PRILOSEC [Concomitant]
     Dosage: UNK, PRN
  27. ARICEPT [Concomitant]
     Dosage: 5 MG, QD
  28. FERROSULFAT [Concomitant]
     Dosage: UNK, QD
  29. FORTEO [Suspect]
     Dosage: 20 UG, QD
     Dates: start: 20110629
  30. MEGACE [Concomitant]
     Indication: INCREASED APPETITE
     Dosage: 20 MG, UNK
  31. LISINOPRIL [Concomitant]
  32. ASACOL [Concomitant]
     Indication: CROHN'S DISEASE
     Dosage: 400 MG, TID
  33. ESTER-C [Concomitant]
     Dosage: 500 MG, QD
  34. TYLENOL PM [Concomitant]
     Dosage: 2 DF, AT BEDTIME
  35. OPTIVIT [Concomitant]
     Dosage: UNK, QD
  36. FEOSOL [Concomitant]
     Dosage: 25 MG, BID
  37. VITAMIN D [Concomitant]
     Dosage: 2000 U, QD

REACTIONS (22)
  - GAIT DISTURBANCE [None]
  - DEHYDRATION [None]
  - CARDIAC FAILURE CONGESTIVE [None]
  - CONFUSIONAL STATE [None]
  - BLOOD PRESSURE DECREASED [None]
  - ULCER HAEMORRHAGE [None]
  - FATIGUE [None]
  - SEPSIS [None]
  - FALL [None]
  - FEELING COLD [None]
  - ASTHENIA [None]
  - WEIGHT DECREASED [None]
  - DECREASED APPETITE [None]
  - RENAL FAILURE [None]
  - ANAEMIA [None]
  - HERPES ZOSTER [None]
  - URINARY TRACT INFECTION [None]
  - CARDIAC DISORDER [None]
  - HYPOTENSION [None]
  - MUSCULOSKELETAL PAIN [None]
  - OEDEMA PERIPHERAL [None]
  - MALAISE [None]
